FAERS Safety Report 6216099-6 (Version None)
Quarter: 2009Q2

REPORT INFORMATION
  Report Type: 
  Country: None (occurrence: None)
  Receive Date: 20090605
  Receipt Date: 20090528
  Transmission Date: 20091009
  Serious: Yes (Hospitalization, Other)
  Sender: FDA-Public Use
  Company Number: NL-ABBOTT-07P-114-0360877-00

PATIENT
  Sex: Male

DRUGS (16)
  1. DEPAKENE [Suspect]
     Indication: COMPLEX PARTIAL SEIZURES
     Route: 048
  2. DEPAKENE [Suspect]
     Indication: GRAND MAL CONVULSION
     Route: 048
  3. DEPAKENE [Suspect]
     Route: 048
     Dates: end: 20060801
  4. CITALOPRAM HYDROBROMIDE [Concomitant]
     Indication: DRUG USE FOR UNKNOWN INDICATION
     Route: 048
  5. ATENOLOL [Concomitant]
     Indication: DRUG USE FOR UNKNOWN INDICATION
     Route: 048
  6. COZAAR [Concomitant]
     Indication: DRUG USE FOR UNKNOWN INDICATION
     Route: 048
  7. COZAAR [Concomitant]
     Route: 048
  8. CHLORTHALIDONE [Concomitant]
     Indication: DRUG USE FOR UNKNOWN INDICATION
     Route: 048
  9. SIMVASTATIN [Concomitant]
     Indication: DRUG USE FOR UNKNOWN INDICATION
     Route: 048
  10. ACENOCOUMAROL [Concomitant]
     Indication: DRUG USE FOR UNKNOWN INDICATION
     Route: 048
  11. GLICLAZIDE [Concomitant]
     Indication: DRUG USE FOR UNKNOWN INDICATION
     Route: 048
  12. LAMOTRIGINE [Concomitant]
     Indication: DRUG USE FOR UNKNOWN INDICATION
     Dosage: 2 DD 100MG AND 1 DD 50 MG
  13. LAMOTRIGINE [Concomitant]
     Dosage: INCREASED TO MAXIMUM DOSE
  14. VIGABATRIN [Concomitant]
     Indication: DRUG USE FOR UNKNOWN INDICATION
     Dosage: NOT REPORTED
  15. PHENOBARBITAL TAB [Concomitant]
     Indication: DRUG USE FOR UNKNOWN INDICATION
     Dosage: NOT REPORTED
  16. LEVETIRACETAM [Concomitant]
     Indication: DRUG USE FOR UNKNOWN INDICATION
     Dosage: NOT REPORTED

REACTIONS (20)
  - AMNESIA [None]
  - ANOXIC ENCEPHALOPATHY [None]
  - ATRIAL FIBRILLATION [None]
  - ATTENTION DEFICIT/HYPERACTIVITY DISORDER [None]
  - CEREBELLAR ATROPHY [None]
  - CEREBRAL ATROPHY [None]
  - COGNITIVE DISORDER [None]
  - CONVULSION [None]
  - CORONARY ARTERY DISEASE [None]
  - DIZZINESS [None]
  - DRUG LEVEL INCREASED [None]
  - DRUG TOXICITY [None]
  - FALL [None]
  - FATIGUE [None]
  - LEUKOARAIOSIS [None]
  - NAUSEA [None]
  - OEDEMA PERIPHERAL [None]
  - PARKINSONISM [None]
  - SOMNOLENCE [None]
  - VOMITING [None]
